FAERS Safety Report 10687398 (Version 1)
Quarter: 2015Q1

REPORT INFORMATION
  Report Type: Spontaneous
  Country: FR (occurrence: FR)
  Receive Date: 20150102
  Receipt Date: 20150102
  Transmission Date: 20150720
  Serious: Yes (Hospitalization)
  Sender: FDA-Public Use
  Company Number: FR-SA-2014SA178195

PATIENT
  Age: 56 Year
  Sex: Male

DRUGS (10)
  1. ONDANSETRON HYDROCHLORIDE. [Suspect]
     Active Substance: ONDANSETRON HYDROCHLORIDE
     Route: 042
     Dates: start: 20141119
  2. APREPITANT. [Suspect]
     Active Substance: APREPITANT
     Route: 042
     Dates: start: 20141119
  3. ERBITUX [Concomitant]
     Active Substance: CETUXIMAB
     Dates: start: 20140124, end: 20140317
  4. CISPLATIN. [Suspect]
     Active Substance: CISPLATIN
     Route: 042
     Dates: start: 20141119
  5. ERBITUX [Concomitant]
     Active Substance: CETUXIMAB
     Dosage: INFUSION
     Route: 042
     Dates: start: 20141119
  6. DAFALGAN [Concomitant]
     Active Substance: ACETAMINOPHEN
  7. FLUOROURACIL. [Suspect]
     Active Substance: FLUOROURACIL
     Dosage: ROUTE: INFUSION?1 IN 1 SINGLE SHOT
     Route: 042
     Dates: start: 20141119
  8. ADVAGRAF [Concomitant]
     Active Substance: TACROLIMUS
     Dosage: PROLONGED RELEASE
     Route: 048
     Dates: start: 2010, end: 20141121
  9. LYRICA [Concomitant]
     Active Substance: PREGABALIN
     Dosage: SOFTGEL
     Route: 048
     Dates: start: 20141119, end: 20141121
  10. PLAVIX [Suspect]
     Active Substance: CLOPIDOGREL BISULFATE
     Route: 048
     Dates: end: 20141121

REACTIONS (2)
  - Gastrointestinal haemorrhage [Recovered/Resolved]
  - Coma [Recovered/Resolved]

NARRATIVE: CASE EVENT DATE: 20141121
